FAERS Safety Report 16207020 (Version 2)
Quarter: 2019Q4

REPORT INFORMATION
  Report Type: Report from Study
  Country: EG (occurrence: EG)
  Receive Date: 20190417
  Receipt Date: 20191114
  Transmission Date: 20200122
  Serious: Yes (Other)
  Sender: FDA-Public Use
  Company Number: EG-PFIZER INC-2019156527

PATIENT

DRUGS (7)
  1. RAPAMUNE [Suspect]
     Active Substance: SIROLIMUS
     Dosage: 5 MG, DAILY
     Route: 048
  2. PREDNISOLONE. [Concomitant]
     Active Substance: PREDNISOLONE
     Indication: IMMUNOSUPPRESSION
     Dosage: 1 MG/KG, DAILY (THEN GRADUALLY TAPERED)
     Route: 048
  3. SIMULECT [Concomitant]
     Active Substance: BASILIXIMAB
     Indication: IMMUNOSUPPRESSION
     Dosage: 20 MG, UNK (AT SURGERY AND ON DAY FOUR POSTOPERATIVE)
     Route: 042
  4. PREDNISOLONE. [Concomitant]
     Active Substance: PREDNISOLONE
     Dosage: 0.1 MG/KG, UNK (BY THE 10TH MONTH POST-TRANSPLANTATION)
  5. PROGRAF [Suspect]
     Active Substance: TACROLIMUS
     Indication: IMMUNOSUPPRESSION
     Dosage: 0.03 MG/KG, DAILY (IN TWO EQUALLY DIVIDED DOSES)
  6. METHYLPREDNISOLONE. [Concomitant]
     Active Substance: METHYLPREDNISOLONE
     Indication: IMMUNOSUPPRESSION
     Dosage: 500 MG, UNK (ONE DAY BEFORE AND ON DAY OF SURGERY)
     Route: 042
  7. RAPAMUNE [Suspect]
     Active Substance: SIROLIMUS
     Indication: IMMUNOSUPPRESSION
     Dosage: 10 MG, 1X/DAY (SINGLE MORNING DOSE)
     Route: 048

REACTIONS (1)
  - Chronic allograft nephropathy [Unknown]
